FAERS Safety Report 22796233 (Version 4)
Quarter: 2023Q4

REPORT INFORMATION
  Report Type: Report from Study
  Country: GB (occurrence: GB)
  Receive Date: 20230808
  Receipt Date: 20231110
  Transmission Date: 20240110
  Serious: Yes (Other)
  Sender: FDA-Public Use
  Company Number: GB-SANDOZ-SDZ2023GB010278

PATIENT
  Age: 24 Year
  Sex: Female

DRUGS (4)
  1. OMNITROPE [Suspect]
     Active Substance: SOMATROPIN
     Dosage: 0.10 MG
     Route: 058
     Dates: start: 20230605
  2. OMNITROPE [Suspect]
     Active Substance: SOMATROPIN
     Dosage: 0.2 MG, QD (0.2 MG, QD (0.2 MG, QD))
     Route: 058
     Dates: start: 20230605
  3. OMNITROPE [Suspect]
     Active Substance: SOMATROPIN
     Indication: Hyperpituitarism
     Dosage: 0.20 MG, QD
     Route: 058
     Dates: start: 20230605
  4. OMNITROPE [Suspect]
     Active Substance: SOMATROPIN
     Indication: Acromegaly
     Dosage: 0.2 DF, QD (0.2 MG, QD (0.2 MG, QD), GRANULES FOR ORAL DROPS, SOLUTION)
     Route: 058
     Dates: start: 20230605

REACTIONS (10)
  - Haematemesis [Unknown]
  - Headache [Unknown]
  - Pain [Unknown]
  - Fatigue [Unknown]
  - Injection site hypersensitivity [Unknown]
  - Injection site bruising [Unknown]
  - Epistaxis [Unknown]
  - Product dose omission issue [Unknown]
  - Vomiting [Unknown]
  - Haemoptysis [Unknown]

NARRATIVE: CASE EVENT DATE: 20230701
